FAERS Safety Report 11993287 (Version 2)
Quarter: 2016Q1

REPORT INFORMATION
  Report Type: Spontaneous
  Country: US (occurrence: US)
  Receive Date: 20160203
  Receipt Date: 20160212
  Transmission Date: 20160526
  Serious: Yes (Other)
  Sender: FDA-Public Use
  Company Number: PHHY2016US013589

PATIENT
  Age: 62 Year
  Sex: Male

DRUGS (1)
  1. PAZOPANIB [Suspect]
     Active Substance: PAZOPANIB
     Indication: METASTATIC RENAL CELL CARCINOMA
     Dosage: 800 MG, UNK
     Route: 065

REACTIONS (8)
  - Staphylococcal osteomyelitis [Recovering/Resolving]
  - Pyrexia [Recovering/Resolving]
  - Night sweats [Recovering/Resolving]
  - Soft tissue mass [Recovering/Resolving]
  - Staphylococcal bacteraemia [Recovering/Resolving]
  - Arthralgia [Recovering/Resolving]
  - Bone erosion [Recovering/Resolving]
  - Leukocytosis [Recovering/Resolving]
